FAERS Safety Report 4473616-4 (Version None)
Quarter: 2004Q4

REPORT INFORMATION
  Report Type: 
  Country: None (occurrence: None)
  Receive Date: 20040909
  Receipt Date: 20040726
  Transmission Date: 20050328
  Serious: Yes (Disabling)
  Sender: FDA-Public Use
  Company Number: F03200400086

PATIENT
  Age: 56 Year
  Sex: Male

DRUGS (2)
  1. ELOXATIN [Suspect]
     Indication: COLORECTAL CANCER METASTATIC
     Dosage: 130 MG/M2 OTHER - INTRAVENOUS NOS
     Route: 042
  2. CAPECITABINE [Concomitant]

REACTIONS (3)
  - DIPLOPIA [None]
  - DYSAESTHESIA [None]
  - PERIPHERAL SENSORIMOTOR NEUROPATHY [None]
